FAERS Safety Report 9356404 (Version 3)
Quarter: 2014Q1

REPORT INFORMATION
  Report Type: Spontaneous
  Country: US (occurrence: US)
  Receive Date: 20130619
  Receipt Date: 20140319
  Transmission Date: 20141002
  Serious: Yes (Hospitalization)
  Sender: FDA-Public Use
  Company Number: US-B.I. PHARMACEUTICALS,INC./RIDGEFIELD-2013-BI-16857BP

PATIENT
  Age: 68 Year
  Sex: Male
  Weight: 106.14 kg

DRUGS (19)
  1. PRADAXA [Suspect]
     Indication: CEREBROVASCULAR ACCIDENT PROPHYLAXIS
     Dosage: 300 MG
     Route: 048
     Dates: start: 20110506, end: 20111205
  2. PRADAXA [Suspect]
     Indication: THROMBOSIS PROPHYLAXIS
  3. PRADAXA [Suspect]
     Indication: ATRIAL FIBRILLATION
  4. AMLODIPINE BESYLATE [Concomitant]
     Dosage: 10 MG
     Route: 065
  5. SIMVASTATIN [Concomitant]
     Dosage: 80 MG
     Route: 065
  6. METFORMIN [Concomitant]
     Route: 065
  7. ALLOPURINOL [Concomitant]
     Route: 065
  8. COLCRYS [Concomitant]
     Dosage: 0.6 MG
     Route: 065
  9. LISINOPRIL [Concomitant]
     Dosage: 40 MG
     Route: 065
  10. RANITIDINE [Concomitant]
     Dosage: 300 MG
     Route: 065
  11. METOPROLOL TARTRATE [Concomitant]
     Dosage: 50 MG
     Route: 065
  12. HUMULIN [Concomitant]
     Route: 065
  13. VITAMIN D [Concomitant]
     Dosage: 7142.8571 U
     Route: 065
  14. OMEPRAZOLE [Concomitant]
     Dosage: 20 MG
     Route: 065
  15. IRON [Concomitant]
     Dosage: 975 MG
     Route: 065
  16. CILOSTAZOL [Concomitant]
     Dosage: 200 MG
     Route: 065
  17. ASPIRIN [Concomitant]
     Dosage: 81 MG
     Route: 065
  18. MULTIVITAMIN [Concomitant]
     Route: 065
  19. STOOL SOFTENER [Concomitant]
     Route: 065

REACTIONS (5)
  - Gastrointestinal haemorrhage [Unknown]
  - Myocardial infarction [Unknown]
  - Haematuria [Recovered/Resolved]
  - Abdominal discomfort [Unknown]
  - Haemoptysis [Unknown]
